FAERS Safety Report 8217725-2 (Version None)
Quarter: 2012Q1

REPORT INFORMATION
  Report Type: 
  Country: None (occurrence: None)
  Receive Date: 20120315
  Receipt Date: 20120302
  Transmission Date: 20120608
  Serious: Yes (Death, Life-Threatening)
  Sender: FDA-Public Use
  Company Number: MC201200141

PATIENT
  Age: 87 Year
  Sex: Female

DRUGS (1)
  1. ANGIOMAX [Suspect]
     Indication: ACUTE MYOCARDIAL INFARCTION
     Dosage: , BOLUS, INTRAVENOUS
     Route: 042
     Dates: start: 20120228, end: 20120228

REACTIONS (1)
  - CEREBROVASCULAR ACCIDENT [None]
